FAERS Safety Report 10205684 (Version 1)
Quarter: 2014Q2

REPORT INFORMATION
  Report Type: Report from Study
  Country: US (occurrence: US)
  Receive Date: 20140530
  Receipt Date: 20140530
  Transmission Date: 20141212
  Serious: Yes (Other)
  Sender: FDA-Public Use
  Company Number: US-ROCHE-1407447

PATIENT
  Age: 12 Year
  Sex: Female
  Weight: 30 kg

DRUGS (7)
  1. NUTROPIN AQ [Suspect]
     Indication: NOONAN SYNDROME
     Route: 058
  2. PULMICORT [Concomitant]
     Dosage: BY NEBULIZATION
     Route: 065
  3. PERIACTIN [Concomitant]
     Dosage: MON-FRI
     Route: 048
  4. NEXIUM [Concomitant]
     Route: 048
  5. XOPENEX [Concomitant]
     Dosage: AS NEEDED. BY NEBULIZATION
     Route: 065
  6. SINGULAIR [Concomitant]
     Dosage: NIGHTLY
     Route: 048
  7. INDERAL [Concomitant]
     Route: 048

REACTIONS (6)
  - Drug dose omission [Unknown]
  - Sleep apnoea syndrome [Unknown]
  - Scoliosis [Unknown]
  - Viral infection [Unknown]
  - Wheezing [Unknown]
  - Treatment noncompliance [Unknown]
